FAERS Safety Report 5988938-5 (Version None)
Quarter: 2008Q4

REPORT INFORMATION
  Report Type: 
  Country: None (occurrence: None)
  Receive Date: 20081204
  Receipt Date: 20081125
  Transmission Date: 20090506
  Serious: Yes (Life-Threatening)
  Sender: FDA-Public Use
  Company Number: 2008SP024048

PATIENT
  Age: 29 Year
  Sex: Female

DRUGS (1)
  1. DESLORATADINE [Suspect]
     Indication: HYPERSENSITIVITY
     Dosage: 5 MG; QD; PO
     Route: 048
     Dates: start: 20070401, end: 20070401

REACTIONS (1)
  - ANAPHYLACTIC SHOCK [None]
